FAERS Safety Report 8397458-2 (Version None)
Quarter: 2012Q2

REPORT INFORMATION
  Report Type: 
  Country: None (occurrence: None)
  Receive Date: 20120529
  Receipt Date: 20120529
  Transmission Date: 20120825
  Serious: Yes (Other)
  Sender: FDA-Public Use
  Company Number: None

PATIENT
  Age: 63 Year
  Sex: Male
  Weight: 103.4201 kg

DRUGS (1)
  1. CRESTOR [Suspect]
     Indication: CORONARY ARTERY DISEASE
     Dosage: 40 MG? ONCE DAILY PO
     Route: 048
     Dates: start: 20010801, end: 20110501

REACTIONS (12)
  - HYPOAESTHESIA [None]
  - MYALGIA [None]
  - DEPRESSION [None]
  - HYPOTHYROIDISM [None]
  - ASTHENIA [None]
  - MEDICATION ERROR [None]
  - INGUINAL HERNIA [None]
  - BLOOD TESTOSTERONE DECREASED [None]
  - TENDON PAIN [None]
  - MUSCULAR WEAKNESS [None]
  - NEUROPATHY PERIPHERAL [None]
  - GAIT DISTURBANCE [None]
